FAERS Safety Report 7833750-5 (Version None)
Quarter: 2011Q4

REPORT INFORMATION
  Report Type: 
  Country: None (occurrence: None)
  Receive Date: 20111024
  Receipt Date: 20111012
  Transmission Date: 20120403
  Serious: Yes (Other)
  Sender: FDA-Public Use
  Company Number: FR-ACTELION-A-CH2011-55494

PATIENT
  Age: 50 Year
  Sex: Male

DRUGS (1)
  1. TRACLEER [Suspect]
     Indication: SKIN ULCER
     Dosage: 125 MG, BID
     Route: 048

REACTIONS (2)
  - GASTROINTESTINAL ANGIODYSPLASIA [None]
  - GASTROINTESTINAL HAEMORRHAGE [None]
